FAERS Safety Report 7367035-0 (Version None)
Quarter: 2011Q1

REPORT INFORMATION
  Report Type: 
  Country: None (occurrence: None)
  Receive Date: 20110322
  Receipt Date: 20110310
  Transmission Date: 20110831
  Serious: Yes (Other)
  Sender: FDA-Public Use
  Company Number: TW-JNJFOC-20110305356

PATIENT
  Age: 22 Year
  Sex: Female

DRUGS (2)
  1. DOXORUBICIN [Suspect]
     Indication: BONE SARCOMA
     Route: 042
  2. IFOSFAMIDE [Suspect]
     Indication: BONE SARCOMA
     Route: 065

REACTIONS (2)
  - OFF LABEL USE [None]
  - LEUKAEMIA [None]
